FAERS Safety Report 17449034 (Version 1)
Quarter: 2020Q1

REPORT INFORMATION
  Report Type: Spontaneous
  Country: JP (occurrence: JP)
  Receive Date: 20200224
  Receipt Date: 20200224
  Transmission Date: 20200409
  Serious: Yes (Other)
  Sender: FDA-Public Use
  Company Number: JP-TEVA-2020-JP-001868J

PATIENT
  Age: 11 Year
  Sex: Female

DRUGS (1)
  1. CONTOL POWDER 10% [Suspect]
     Active Substance: CHLORDIAZEPOXIDE
     Indication: HYPOTONIA
     Dosage: .4 GRAM DAILY;
     Route: 048
     Dates: start: 20200216, end: 20200216

REACTIONS (2)
  - Overdose [Unknown]
  - Depressed level of consciousness [Recovered/Resolved]

NARRATIVE: CASE EVENT DATE: 20200216
